FAERS Safety Report 20661019 (Version 1)
Quarter: 2022Q1

REPORT INFORMATION
  Report Type: Spontaneous
  Country: US (occurrence: US)
  Receive Date: 20220331
  Receipt Date: 20220331
  Transmission Date: 20220423
  Serious: No
  Sender: FDA-Public Use
  Company Number: US-AMGEN-USASP2022055319

PATIENT
  Sex: Female

DRUGS (20)
  1. OTEZLA [Suspect]
     Active Substance: APREMILAST
     Indication: Psoriasis
     Dosage: 30 MILLIGRAM, BID
     Route: 048
     Dates: start: 20210112
  2. ALBUTEROL [Concomitant]
     Active Substance: ALBUTEROL
     Dosage: 2 MILLIGRAM
  3. BRIVIACT [Concomitant]
     Active Substance: BRIVARACETAM
     Dosage: 50 MILLIGRAM
  4. CELEBREX [Concomitant]
     Active Substance: CELECOXIB
     Dosage: 200 MILLIGRAM
  5. EPINEPHRINE [Concomitant]
     Active Substance: EPINEPHRINE
  6. FOLIC ACID [Concomitant]
     Active Substance: FOLIC ACID
     Dosage: 400 MICROGRAM
  7. LORATADINE [Concomitant]
     Active Substance: LORATADINE
     Dosage: 10 MILLIGRAM
  8. METFORMIN [Concomitant]
     Active Substance: METFORMIN HYDROCHLORIDE
     Dosage: 500 MILLIGRAM
  9. METHOCARBAMOL [Concomitant]
     Active Substance: METHOCARBAMOL
     Dosage: 750 MILLIGRAM
  10. OMEGA-3 FATTY ACIDS [Concomitant]
     Active Substance: OMEGA-3 FATTY ACIDS
     Dosage: 1000 MILLIGRAM
  11. PRAVASTATIN [Concomitant]
     Active Substance: PRAVASTATIN
     Dosage: 40 MILLIGRAM
  12. ROBAXIN [Concomitant]
     Active Substance: METHOCARBAMOL
     Dosage: 100 MILLIGRAM PER MILLILITRE
  13. SHAROBEL [Concomitant]
     Active Substance: NORETHINDRONE
     Dosage: 0.35 MILLIGRAM
  14. SINGULAIR [Concomitant]
     Active Substance: MONTELUKAST SODIUM
  15. TOPAMAX [Concomitant]
     Active Substance: TOPIRAMATE
     Dosage: 100 MILLIGRAM
  16. TRETINOIN [Concomitant]
     Active Substance: TRETINOIN
  17. TROKENDI XR [Concomitant]
     Active Substance: TOPIRAMATE
     Dosage: 200 MILLIGRAM
  18. VIMPAT [Concomitant]
     Active Substance: LACOSAMIDE
     Dosage: 50 MILLIGRAM
  19. VITAMIN D NOS [Concomitant]
     Active Substance: VITAMIN D NOS
     Dosage: 5000 UNIT
  20. VITAMIN D2 [Concomitant]
     Active Substance: ERGOCALCIFEROL
     Dosage: 400 UNIT

REACTIONS (3)
  - Staphylococcal infection [Unknown]
  - Therapy non-responder [Unknown]
  - Product dose omission issue [Unknown]
